FAERS Safety Report 13983117 (Version 1)
Quarter: 2017Q3

REPORT INFORMATION
  Report Type: Spontaneous
  Country: AU (occurrence: AU)
  Receive Date: 20170918
  Receipt Date: 20170918
  Transmission Date: 20171128
  Serious: Yes (Other)
  Sender: FDA-Public Use
  Company Number: AU-APOPHARMA USA, INC.-2017AP018196

PATIENT
  Age: 55 Year
  Sex: Male

DRUGS (1)
  1. ALKERAN [Suspect]
     Active Substance: MELPHALAN
     Indication: GASTROINTESTINAL AMYLOIDOSIS
     Dosage: UNK, OTHER
     Route: 065

REACTIONS (1)
  - Gastrointestinal haemorrhage [Unknown]
